FAERS Safety Report 12719490 (Version 2)
Quarter: 2016Q3

REPORT INFORMATION
  Report Type: Spontaneous
  Country: ES (occurrence: ES)
  Receive Date: 20160907
  Receipt Date: 20160913
  Transmission Date: 20161109
  Serious: Yes (Other)
  Sender: FDA-Public Use
  Company Number: ES-ACCORD-043657

PATIENT
  Sex: Male

DRUGS (4)
  1. FLUOROURACIL. [Suspect]
     Active Substance: FLUOROURACIL
     Indication: COLON CANCER
     Dosage: STARTED WITH LOADING DOSE OF 400 MG/M2 CYCLICAL IV BOLUS: MAY-2011 TO DEC-2011
     Route: 040
     Dates: start: 201105, end: 201112
  2. OXALIPLATIN. [Suspect]
     Active Substance: OXALIPLATIN
     Indication: COLON CANCER
     Dosage: ADMINISTERED ON DAY 1 ONLY AS A 2-HOUR INFUSION IN 250 ML OF DEXTROSE 5%, CONCURRENT WITH FA
     Dates: start: 201105, end: 201112
  3. FOLINIC ACID [Suspect]
     Active Substance: LEUCOVORIN
     Indication: COLON CANCER
     Dosage: ADMINISTERED AS A 2-HOUR INFUSION ON DAY 1 AND DAY 2
     Dates: start: 201105, end: 201112
  4. GLUCOSE [Concomitant]
     Active Substance: DEXTROSE
     Dosage: STRENGTH: 5%
     Dates: start: 201105, end: 201112

REACTIONS (1)
  - Neurotoxicity [Recovered/Resolved]
